FAERS Safety Report 24350402 (Version 4)
Quarter: 2024Q4

REPORT INFORMATION
  Report Type: Spontaneous
  Country: US (occurrence: US)
  Receive Date: 20240923
  Receipt Date: 20241107
  Transmission Date: 20250115
  Serious: Yes (Other)
  Sender: GILEAD
  Company Number: US-GILEAD-2024-0688210

PATIENT
  Age: 39 Year
  Sex: Male
  Weight: 68.027 kg

DRUGS (2)
  1. TRUVADA [Suspect]
     Active Substance: EMTRICITABINE\TENOFOVIR DISOPROXIL FUMARATE
     Indication: Prophylaxis against HIV infection
     Dosage: 1 DOSAGE FORM [200/300MG]
     Route: 065
     Dates: start: 20160308, end: 20240911
  2. DESCOVY [Suspect]
     Active Substance: EMTRICITABINE\TENOFOVIR ALAFENAMIDE FUMARATE
     Indication: Prophylaxis against HIV infection
     Dosage: 1 DOSAGE FORM [200/25MG]
     Route: 065
     Dates: start: 20240911

REACTIONS (4)
  - Upper limb fracture [Recovered/Resolved]
  - Fall [Recovered/Resolved]
  - Upper limb fracture [Unknown]
  - Radius fracture [Unknown]

NARRATIVE: CASE EVENT DATE: 20240831
